FAERS Safety Report 20552278 (Version 1)
Quarter: 2022Q1

REPORT INFORMATION
  Report Type: Spontaneous
  Country: US (occurrence: US)
  Receive Date: 20220304
  Receipt Date: 20220304
  Transmission Date: 20220423
  Serious: Yes (Death, Life-Threatening, Other)
  Sender: FDA-Public Use
  Company Number: US-BAYER-2020-246305

PATIENT
  Age: 61 Year
  Sex: Male

DRUGS (15)
  1. TRAZODONE [Suspect]
     Active Substance: TRAZODONE HYDROCHLORIDE
     Indication: Product used for unknown indication
  2. OXYCODONE [Suspect]
     Active Substance: OXYCODONE
     Indication: Product used for unknown indication
  3. HYDROCODONE [Suspect]
     Active Substance: HYDROCODONE
     Indication: Product used for unknown indication
  4. DIAZEPAM [Suspect]
     Active Substance: DIAZEPAM
     Indication: Product used for unknown indication
  5. FENTANYL [Interacting]
     Active Substance: FENTANYL
     Indication: Product used for unknown indication
  6. MORPHINE [Interacting]
     Active Substance: MORPHINE
     Indication: Product used for unknown indication
  7. ETIZOLAM [Interacting]
     Active Substance: ETIZOLAM
     Indication: Product used for unknown indication
  8. DRONABINOL [Interacting]
     Active Substance: DRONABINOL
     Indication: Product used for unknown indication
  9. DIMETHYL SULFOXIDE [Concomitant]
     Active Substance: DIMETHYL SULFOXIDE
  10. PIROXICAM [Concomitant]
     Active Substance: PIROXICAM
  11. SULFAMETHOXAZOLE [Concomitant]
     Active Substance: SULFAMETHOXAZOLE
  12. ONDANSETRON [Concomitant]
     Active Substance: ONDANSETRON
  13. MIRTAZAPINE [Concomitant]
     Active Substance: MIRTAZAPINE
  14. CLONIDINE [Concomitant]
     Active Substance: CLONIDINE
  15. GABAPENTIN [Concomitant]
     Active Substance: GABAPENTIN

REACTIONS (6)
  - Pulmonary oedema [Fatal]
  - Drug interaction [Fatal]
  - Respiratory depression [Fatal]
  - Pulmonary congestion [Fatal]
  - Toxicity to various agents [Fatal]
  - Brain oedema [Fatal]

NARRATIVE: CASE EVENT DATE: 20190801
